FAERS Safety Report 20015611 (Version 1)
Quarter: 2021Q4

REPORT INFORMATION
  Report Type: Spontaneous
  Country: US (occurrence: None)
  Receive Date: 20211101
  Receipt Date: 20211101
  Transmission Date: 20220303
  Serious: Yes (Other)
  Sender: FDA-Public Use
  Company Number: None

PATIENT
  Age: 40 Year
  Sex: Female

DRUGS (1)
  1. ALBUTEROL [Suspect]
     Active Substance: ALBUTEROL
     Indication: Asthma
     Dosage: OTHER QUANTITY : 8.5 PUFF(S);?FREQUENCY : AS NEEDED;?
     Route: 055
     Dates: start: 20210804, end: 20210814

REACTIONS (3)
  - Product substitution issue [None]
  - Device occlusion [None]
  - Device malfunction [None]

NARRATIVE: CASE EVENT DATE: 20211027
